FAERS Safety Report 7161400-2 (Version None)
Quarter: 2010Q4

REPORT INFORMATION
  Report Type: 
  Country: None (occurrence: None)
  Receive Date: 20101215
  Receipt Date: 20101203
  Transmission Date: 20110411
  Serious: Yes (Disabling)
  Sender: FDA-Public Use
  Company Number: US-CELGENEUS-163-21880-10102122

PATIENT
  Sex: Male

DRUGS (1)
  1. REVLIMID [Suspect]
     Route: 048
     Dates: start: 20100825, end: 20101004

REACTIONS (4)
  - MYOPATHY [None]
  - NEUROPATHY PERIPHERAL [None]
  - TINNITUS [None]
  - VISION BLURRED [None]
